FAERS Safety Report 15130487 (Version 3)
Quarter: 2019Q2

REPORT INFORMATION
  Report Type: Report from Study
  Country: FR (occurrence: FR)
  Receive Date: 20180711
  Receipt Date: 20190514
  Transmission Date: 20190711
  Serious: Yes (Death, Hospitalization, Other)
  Sender: FDA-Public Use
  Company Number: FR-JAZZ-2018-FR-010607

PATIENT

DRUGS (1)
  1. DEFITELIO [Suspect]
     Active Substance: DEFIBROTIDE SODIUM
     Indication: PROPHYLAXIS
     Dosage: 25 MG/KG, QD
     Route: 042
     Dates: start: 20141218, end: 20150108

REACTIONS (11)
  - Somnolence [Fatal]
  - Renal failure [Fatal]
  - Graft versus host disease [Unknown]
  - Retinal artery occlusion [Unknown]
  - Hypotension [Unknown]
  - Staphylococcal infection [Unknown]
  - Hepatocellular injury [Unknown]
  - Pancreatitis acute [Fatal]
  - Asthenia [Unknown]
  - Confusional state [Fatal]
  - Cholestasis [Unknown]

NARRATIVE: CASE EVENT DATE: 20150317
